FAERS Safety Report 21896089 (Version 4)
Quarter: 2023Q2

REPORT INFORMATION
  Report Type: Report from Study
  Country: US (occurrence: US)
  Receive Date: 20230123
  Receipt Date: 20230414
  Transmission Date: 20230722
  Serious: No
  Sender: FDA-Public Use
  Company Number: US-002147023-NVSC2023US011082

PATIENT
  Sex: Female
  Weight: 108.8 kg

DRUGS (3)
  1. CLOBETASOL [Suspect]
     Active Substance: CLOBETASOL
     Indication: Psoriasis
     Dosage: UNK
     Route: 065
  2. TRIAMCINOLONE [Suspect]
     Active Substance: TRIAMCINOLONE
     Indication: Psoriasis
     Dosage: UNK
     Route: 065
  3. COSENTYX [Suspect]
     Active Substance: SECUKINUMAB
     Indication: Psoriasis
     Dosage: UNK
     Route: 058

REACTIONS (8)
  - Skin exfoliation [Unknown]
  - Skin plaque [Unknown]
  - Papule [Unknown]
  - Macule [Unknown]
  - Vulvovaginal mycotic infection [Unknown]
  - Pruritus [Unknown]
  - Skin irritation [Unknown]
  - Drug ineffective [Unknown]
